FAERS Safety Report 10202422 (Version 3)
Quarter: 2014Q2

REPORT INFORMATION
  Report Type: Spontaneous
  Country: JP (occurrence: JP)
  Receive Date: 20140528
  Receipt Date: 20140611
  Transmission Date: 20141212
  Serious: Yes (Hospitalization)
  Sender: FDA-Public Use
  Company Number: JP-PFIZER INC-2014144179

PATIENT
  Sex: Female

DRUGS (2)
  1. LYRICA [Suspect]
     Indication: BACK PAIN
     Route: 048
  2. MELOXICAM [Suspect]
     Indication: BACK PAIN

REACTIONS (4)
  - Oedema [Unknown]
  - Urticaria [Unknown]
  - Purpura [Unknown]
  - Hyperthermia [Unknown]
